FAERS Safety Report 5234935-7 (Version None)
Quarter: 2007Q1

REPORT INFORMATION
  Report Type: 
  Country: None (occurrence: None)
  Receive Date: 20070209
  Receipt Date: 20070202
  Transmission Date: 20070707
  Serious: Yes (Other)
  Sender: FDA-Public Use
  Company Number: JP-PFIZER INC-2007009724

PATIENT
  Age: 60 Year
  Sex: Female

DRUGS (5)
  1. ZOLOFT [Suspect]
     Indication: DEPRESSION
     Dosage: DAILY DOSE:100MG
     Route: 048
     Dates: start: 20061201, end: 20070120
  2. AMOXAN [Concomitant]
     Route: 048
  3. TOFRANIL [Concomitant]
     Route: 048
  4. RESLIN [Concomitant]
     Route: 048
  5. MIRADOL [Concomitant]
     Route: 048

REACTIONS (4)
  - DEPRESSION [None]
  - FACE INJURY [None]
  - IMPAIRED DRIVING ABILITY [None]
  - LOSS OF CONSCIOUSNESS [None]
